FAERS Safety Report 7068260 (Version 2)
Quarter: 2014Q3

REPORT INFORMATION
  Report Type: Spontaneous
  Country: US (occurrence: None)
  Receive Date: 20090724
  Receipt Date: 20140925
  Transmission Date: 20150326
  Serious: Yes (Hospitalization, Other)
  Sender: FDA-Public Use
  Company Number: 2009S1005616

PATIENT
  Age: 40 Year
  Sex: Male

DRUGS (8)
  1. TYLENOL [Concomitant]
     Active Substance: ACETAMINOPHEN
  2. INSULIN (INSULIN) [Concomitant]
     Active Substance: INSULIN NOS
  3. PROMETHAZINE [Concomitant]
     Active Substance: PROMETHAZINE\PROMETHAZINE HYDROCHLORIDE
  4. CIPRO [Concomitant]
     Active Substance: CIPROFLOXACIN HYDROCHLORIDE
  5. MAALOX (MAGNESIUM HYDROXINE, ALUMINIUM HYDROXIDE) [Concomitant]
  6. PHOSPHO-SODA [Suspect]
     Active Substance: SODIUM PHOSPHATE, DIBASIC\SODIUM PHOSPHATE, MONOBASIC
     Indication: COLONOSCOPY
     Dosage: PO
     Route: 048
     Dates: start: 20070314
  7. METFORMIN [Concomitant]
     Active Substance: METFORMIN HYDROCHLORIDE
  8. PRINZIDE (HYDROCHLOROTHIAZIDE, LISINOPRIL DIHYDRATE) [Concomitant]

REACTIONS (23)
  - Blood parathyroid hormone increased [None]
  - Hyperkalaemia [None]
  - Gastrointestinal haemorrhage [None]
  - Gastric disorder [None]
  - Coagulopathy [None]
  - Tubulointerstitial nephritis [None]
  - Hypercalcaemia [None]
  - Visual impairment [None]
  - Swelling face [None]
  - Peripheral swelling [None]
  - Chills [None]
  - Headache [None]
  - Haemorrhage [None]
  - Abnormal clotting factor [None]
  - Diarrhoea [None]
  - Dizziness [None]
  - Abdominal distension [None]
  - Renal failure chronic [None]
  - Nephrogenic anaemia [None]
  - Renal failure acute [None]
  - Oesophagogastroduodenoscopy abnormal [None]
  - Hiatus hernia [None]
  - Asthenia [None]

NARRATIVE: CASE EVENT DATE: 20070410
